FAERS Safety Report 17499925 (Version 1)
Quarter: 2020Q1

REPORT INFORMATION
  Report Type: Spontaneous
  Country: FR (occurrence: FR)
  Receive Date: 20200305
  Receipt Date: 20200305
  Transmission Date: 20200409
  Serious: Yes (Hospitalization)
  Sender: FDA-Public Use
  Company Number: FR-AUROBINDO-AUR-APL-2017-25482

PATIENT
  Age: 70 Year
  Sex: Male
  Weight: 86 kg

DRUGS (25)
  1. TADENAN [Suspect]
     Active Substance: PYGEUM
     Indication: ANAESTHESIA
  2. GABAPENTIN ARROW [Suspect]
     Active Substance: GABAPENTIN
     Indication: PRODUCT USED FOR UNKNOWN INDICATION
     Dosage: 600 MILLIGRAM
     Route: 048
  3. CARBOSYMAG [Concomitant]
     Indication: PRODUCT USED FOR UNKNOWN INDICATION
     Dosage: 0.25 DOSAGE FORM, ONCE A DAY
     Route: 048
  4. ESMERON [Suspect]
     Active Substance: ROCURONIUM BROMIDE
     Indication: ANAESTHESIA
     Dosage: UNK
     Route: 042
     Dates: start: 20120903, end: 20120903
  5. EXACYL [Suspect]
     Active Substance: TRANEXAMIC ACID
     Indication: HAEMORRHAGE PROPHYLAXIS
     Dosage: 2 MILLIGRAM
     Route: 040
     Dates: start: 20120903, end: 20120903
  6. MIDAZOLAM PANPHARMA [Suspect]
     Active Substance: MIDAZOLAM HYDROCHLORIDE
     Indication: ANAESTHESIA
     Dosage: UNK
     Route: 042
     Dates: start: 20120903, end: 20120903
  7. ULTIVA [Suspect]
     Active Substance: REMIFENTANIL HYDROCHLORIDE
     Indication: ANAESTHESIA
     Dosage: UNK
     Route: 042
     Dates: start: 20120903, end: 20120903
  8. PROPOFOL LIPURO [Suspect]
     Active Substance: PROPOFOL
     Indication: ANAESTHESIA
     Dosage: UNK
     Route: 042
     Dates: start: 20120903, end: 20120903
  9. EPHEDRINE RENAUDIN [Suspect]
     Active Substance: EPHEDRINE HYDROCHLORIDE
     Indication: ANAESTHESIA
     Dosage: UNK
     Route: 041
     Dates: start: 20120903, end: 20120903
  10. INEXIUM [Concomitant]
     Active Substance: ESOMEPRAZOLE
     Indication: PROPHYLAXIS AGAINST GASTROINTESTINAL ULCER
     Dosage: 1 DF, DAILY
     Route: 048
     Dates: start: 20120902, end: 20120922
  11. MELAXOSE [Concomitant]
     Active Substance: LACTULOSE\PARAFFIN
     Indication: PRODUCT USED FOR UNKNOWN INDICATION
  12. PAROXETINE ARROW FILM-COATED TABLET [Suspect]
     Active Substance: PAROXETINE
     Indication: PRODUCT USED FOR UNKNOWN INDICATION
     Dosage: UNK
     Route: 065
  13. KETAMINE PANPHARMA [Suspect]
     Active Substance: KETAMINE
     Indication: ANAESTHESIA
     Dosage: UNK
     Route: 042
     Dates: start: 20120903, end: 20120903
  14. TANAKAN [Suspect]
     Active Substance: GINKGO
     Indication: COGNITIVE DISORDER
     Dosage: 40 MG, TID
     Route: 048
     Dates: end: 20120903
  15. ZINNAT [Suspect]
     Active Substance: CEFUROXIME
     Indication: ANAESTHESIA
     Dosage: UNK
     Route: 042
     Dates: start: 20120903, end: 20120903
  16. PROTAMINE CHOAY [Suspect]
     Active Substance: PROTAMINE
     Indication: PRODUCT USED FOR UNKNOWN INDICATION
     Dosage: UNK
     Route: 042
     Dates: start: 20120903, end: 20120903
  17. TADENAN [Suspect]
     Active Substance: PYGEUM
     Indication: MICTURITION DISORDER
     Dosage: 50 MG, BID
     Route: 048
     Dates: end: 20120903
  18. VITAMIN B6 [Concomitant]
     Active Substance: PYRIDOXINE HYDROCHLORIDE
     Indication: PRODUCT USED FOR UNKNOWN INDICATION
     Dosage: 2 DOSAGE FORM, ONCE A DAY
     Route: 048
  19. HEPARIN SODIUM. [Suspect]
     Active Substance: HEPARIN SODIUM
     Indication: EXTRACORPOREAL CIRCULATION
     Dosage: 20000 UI + 11000 (BOLUS)
     Route: 040
     Dates: start: 20120903, end: 20120903
  20. DUPHALAC [Concomitant]
     Active Substance: LACTULOSE
     Indication: PRODUCT USED FOR UNKNOWN INDICATION
     Dosage: 20 MILLIGRAM, ONCE A DAY
     Route: 065
  21. ATARAX [Suspect]
     Active Substance: HYDROXYZINE HYDROCHLORIDE
     Indication: ANXIETY
     Dosage: 50 MG AND 75 MG DAILY
     Route: 048
     Dates: start: 20120902, end: 20120903
  22. LEXOMIL [Suspect]
     Active Substance: BROMAZEPAM
     Indication: ANXIETY
     Dosage: 1.5 MILLIGRAM
     Route: 048
     Dates: end: 20120903
  23. LEXOMIL [Suspect]
     Active Substance: BROMAZEPAM
     Indication: MICTURITION DISORDER
  24. THIAMINE. [Concomitant]
     Active Substance: THIAMINE
     Indication: PRODUCT USED FOR UNKNOWN INDICATION
     Dosage: 2 DOSAGE FORM, ONCE A DAY
     Route: 048
  25. ZOCOR [Concomitant]
     Active Substance: SIMVASTATIN
     Indication: PRODUCT USED FOR UNKNOWN INDICATION
     Dosage: 20 MILLIGRAM, ONCE A DAY
     Route: 065

REACTIONS (4)
  - Cardio-respiratory arrest [Recovered/Resolved with Sequelae]
  - Incision site haemorrhage [Recovered/Resolved]
  - Pericardial haemorrhage [Recovered/Resolved]
  - Cardiac tamponade [Recovered/Resolved]

NARRATIVE: CASE EVENT DATE: 20120903
